FAERS Safety Report 18726535 (Version 2)
Quarter: 2021Q3

REPORT INFORMATION
  Report Type: Spontaneous
  Country: JP (occurrence: JP)
  Receive Date: 20210112
  Receipt Date: 20210805
  Transmission Date: 20211014
  Serious: Yes (Hospitalization, Other)
  Sender: FDA-Public Use
  Company Number: JP-TAKEDA-2021TJP000149

PATIENT
  Age: 19 Year
  Sex: Male
  Weight: 58.14 kg

DRUGS (1)
  1. ENTYVIO [Suspect]
     Active Substance: VEDOLIZUMAB
     Indication: COLITIS ULCERATIVE
     Dosage: 300 MILLIGRAM, Q8WEEKS
     Route: 041
     Dates: start: 20191203

REACTIONS (1)
  - IgA nephropathy [Not Recovered/Not Resolved]

NARRATIVE: CASE EVENT DATE: 20201006
